FAERS Safety Report 17656788 (Version 1)
Quarter: 2020Q2

REPORT INFORMATION
  Report Type: Spontaneous
  Country: US (occurrence: US)
  Receive Date: 20200410
  Receipt Date: 20200410
  Transmission Date: 20200713
  Serious: No
  Sender: FDA-Public Use
  Company Number: US-PERRIGO-18US016101

PATIENT
  Sex: Male

DRUGS (2)
  1. PSEUDOEPHEDRINE HYDROCHLORIDE. [Suspect]
     Active Substance: PSEUDOEPHEDRINE HYDROCHLORIDE
     Indication: PARANASAL SINUS DISCOMFORT
     Dosage: UNKNOWN, UNKNOWN
     Route: 048
     Dates: start: 201806
  2. PSEUDOEPHEDRINE HYDROCHLORIDE. [Suspect]
     Active Substance: PSEUDOEPHEDRINE HYDROCHLORIDE
     Indication: INCREASED UPPER AIRWAY SECRETION

REACTIONS (5)
  - Poor quality sleep [Unknown]
  - Abnormal dreams [Unknown]
  - Dry mouth [Unknown]
  - Somnolence [Unknown]
  - Insomnia [Unknown]

NARRATIVE: CASE EVENT DATE: 201806
